FAERS Safety Report 4820841-6 (Version None)
Quarter: 2005Q4

REPORT INFORMATION
  Report Type: 
  Country: None (occurrence: None)
  Receive Date: 20051104
  Receipt Date: 20051014
  Transmission Date: 20060501
  Serious: Yes (Other)
  Sender: FDA-Public Use
  Company Number: BR-AVENTIS-200519350GDDC

PATIENT
  Age: 41 Year
  Sex: Male

DRUGS (1)
  1. ALLEGRA [Suspect]
     Indication: DERMATITIS ALLERGIC
     Route: 048
     Dates: start: 20050918, end: 20050918

REACTIONS (3)
  - CHEST PAIN [None]
  - PARAESTHESIA [None]
  - TACHYCARDIA [None]
